FAERS Safety Report 9248866 (Version 4)
Quarter: 2013Q3

REPORT INFORMATION
  Report Type: Spontaneous
  Country: JP (occurrence: JP)
  Receive Date: 20130423
  Receipt Date: 20130701
  Transmission Date: 20140515
  Serious: Yes (Other)
  Sender: FDA-Public Use
  Company Number: JP-SANOFI-AVENTIS-2013SA036532

PATIENT
  Age: 72 Year
  Sex: Male

DRUGS (5)
  1. MYSLEE [Suspect]
     Indication: INSOMNIA
     Route: 048
     Dates: start: 2009
  2. CELECOX [Suspect]
     Indication: CERVICOBRACHIAL SYNDROME
     Route: 048
     Dates: start: 20130124, end: 20130204
  3. EXFORGE [Concomitant]
     Indication: HYPERTENSION
     Route: 065
     Dates: start: 201206
  4. EPADEL [Concomitant]
     Indication: HYPERLIPIDAEMIA
     Route: 065
     Dates: start: 201206
  5. RABEPRAZOLE [Concomitant]
     Route: 065
     Dates: start: 20130124

REACTIONS (1)
  - Generalised erythema [Recovering/Resolving]
